FAERS Safety Report 20540730 (Version 1)
Quarter: 2022Q1

REPORT INFORMATION
  Report Type: Spontaneous
  Country: US (occurrence: US)
  Receive Date: 20220302
  Receipt Date: 20220302
  Transmission Date: 20220423
  Serious: Yes (Other)
  Sender: FDA-Public Use
  Company Number: US-NOVARTISPH-NVSC2022US043666

PATIENT
  Age: 77 Year
  Sex: Male

DRUGS (2)
  1. CAPMATINIB [Suspect]
     Active Substance: CAPMATINIB
     Indication: Cholangiocarcinoma
     Dosage: 400 MG, BID
     Route: 065
  2. CAPMATINIB [Suspect]
     Active Substance: CAPMATINIB
     Dosage: 300 MG, BID (DECREASED DUE TO ADVERSE EFFECTS)
     Route: 065

REACTIONS (6)
  - Cholangiocarcinoma [Unknown]
  - Neoplasm progression [Unknown]
  - Decreased appetite [Unknown]
  - Fatigue [Unknown]
  - Therapy partial responder [Unknown]
  - Product use in unapproved indication [Unknown]
